FAERS Safety Report 17735406 (Version 1)
Quarter: 2020Q2

REPORT INFORMATION
  Report Type: Spontaneous
  Country: US (occurrence: US)
  Receive Date: 20200501
  Receipt Date: 20200501
  Transmission Date: 20200714
  Serious: No
  Sender: FDA-Public Use
  Company Number: US-TEVA-2020-US-1229512

PATIENT
  Sex: Female

DRUGS (1)
  1. PROAIR HFA [Suspect]
     Active Substance: ALBUTEROL SULFATE
     Indication: BRONCHOSPASM
     Route: 065

REACTIONS (5)
  - Intentional dose omission [Unknown]
  - Adverse event [Unknown]
  - Arthralgia [Unknown]
  - Joint stiffness [Unknown]
  - Heart rate increased [Unknown]
